FAERS Safety Report 25841012 (Version 5)
Quarter: 2025Q4

REPORT INFORMATION
  Report Type: Spontaneous
  Country: GB (occurrence: GB)
  Receive Date: 20250924
  Receipt Date: 20251210
  Transmission Date: 20260117
  Serious: Yes (Hospitalization, Other)
  Sender: DR REDDYS
  Company Number: None

PATIENT
  Sex: Female

DRUGS (73)
  1. PREGABALIN [Suspect]
     Active Substance: PREGABALIN
     Indication: Hypermobility syndrome
     Dosage: UNK
  2. PREGABALIN [Suspect]
     Active Substance: PREGABALIN
     Indication: Fibromyalgia
  3. PREGABALIN [Suspect]
     Active Substance: PREGABALIN
     Indication: Intervertebral disc degeneration
  4. PREGABALIN [Suspect]
     Active Substance: PREGABALIN
     Indication: Neuropathy peripheral
  5. PREGABALIN [Suspect]
     Active Substance: PREGABALIN
     Indication: Hemiplegic migraine
  6. PREGABALIN [Suspect]
     Active Substance: PREGABALIN
     Indication: Endometriosis
  7. PREGABALIN [Suspect]
     Active Substance: PREGABALIN
     Indication: Arthralgia
  8. PREGABALIN [Suspect]
     Active Substance: PREGABALIN
     Indication: Spinal osteoarthritis
  9. PREGABALIN [Suspect]
     Active Substance: PREGABALIN
     Indication: Hyperparathyroidism
  10. PREGABALIN [Suspect]
     Active Substance: PREGABALIN
     Indication: Hernia
  11. DULOXETINE [Suspect]
     Active Substance: DULOXETINE
     Indication: Hypermobility syndrome
     Dosage: UNK
  12. DULOXETINE [Suspect]
     Active Substance: DULOXETINE
     Indication: Fibromyalgia
  13. DULOXETINE [Suspect]
     Active Substance: DULOXETINE
     Indication: Intervertebral disc degeneration
  14. DULOXETINE [Suspect]
     Active Substance: DULOXETINE
     Indication: Neuropathy peripheral
  15. DULOXETINE [Suspect]
     Active Substance: DULOXETINE
     Indication: Hemiplegic migraine
  16. DULOXETINE [Suspect]
     Active Substance: DULOXETINE
     Indication: Endometriosis
  17. DULOXETINE [Suspect]
     Active Substance: DULOXETINE
     Indication: Arthralgia
  18. DULOXETINE [Suspect]
     Active Substance: DULOXETINE
     Indication: Spinal osteoarthritis
  19. DULOXETINE [Suspect]
     Active Substance: DULOXETINE
     Indication: Hyperparathyroidism
  20. DULOXETINE [Suspect]
     Active Substance: DULOXETINE
     Indication: Hernia
  21. TRAMADOL [Suspect]
     Active Substance: TRAMADOL
     Indication: Hypermobility syndrome
     Dosage: UNK
  22. TRAMADOL [Suspect]
     Active Substance: TRAMADOL
     Indication: Fibromyalgia
  23. TRAMADOL [Suspect]
     Active Substance: TRAMADOL
     Indication: Intervertebral disc degeneration
  24. TRAMADOL [Suspect]
     Active Substance: TRAMADOL
     Indication: Neuropathy peripheral
  25. TRAMADOL [Suspect]
     Active Substance: TRAMADOL
     Indication: Hemiplegic migraine
  26. TRAMADOL [Suspect]
     Active Substance: TRAMADOL
     Indication: Endometriosis
  27. TRAMADOL [Suspect]
     Active Substance: TRAMADOL
     Indication: Arthralgia
  28. TRAMADOL [Suspect]
     Active Substance: TRAMADOL
     Indication: Spinal osteoarthritis
  29. TRAMADOL [Suspect]
     Active Substance: TRAMADOL
     Indication: Hyperparathyroidism
  30. TRAMADOL [Suspect]
     Active Substance: TRAMADOL
     Indication: Hernia
  31. NAPROXEN [Suspect]
     Active Substance: NAPROXEN
     Indication: Hypermobility syndrome
     Dosage: UNK
  32. NAPROXEN [Suspect]
     Active Substance: NAPROXEN
     Indication: Fibromyalgia
  33. NAPROXEN [Suspect]
     Active Substance: NAPROXEN
     Indication: Intervertebral disc degeneration
  34. NAPROXEN [Suspect]
     Active Substance: NAPROXEN
     Indication: Neuropathy peripheral
  35. NAPROXEN [Suspect]
     Active Substance: NAPROXEN
     Indication: Hemiplegic migraine
  36. NAPROXEN [Suspect]
     Active Substance: NAPROXEN
     Indication: Endometriosis
  37. NAPROXEN [Suspect]
     Active Substance: NAPROXEN
     Indication: Arthralgia
  38. NAPROXEN [Suspect]
     Active Substance: NAPROXEN
     Indication: Spinal osteoarthritis
  39. NAPROXEN [Suspect]
     Active Substance: NAPROXEN
     Indication: Hyperparathyroidism
  40. NAPROXEN [Suspect]
     Active Substance: NAPROXEN
     Indication: Hernia
  41. TRAMADOL HYDROCHLORIDE [Suspect]
     Active Substance: TRAMADOL HYDROCHLORIDE
     Indication: Hypermobility syndrome
     Dosage: UNK
  42. TRAMADOL HYDROCHLORIDE [Suspect]
     Active Substance: TRAMADOL HYDROCHLORIDE
     Indication: Fibromyalgia
  43. TRAMADOL HYDROCHLORIDE [Suspect]
     Active Substance: TRAMADOL HYDROCHLORIDE
     Indication: Intervertebral disc degeneration
  44. TRAMADOL HYDROCHLORIDE [Suspect]
     Active Substance: TRAMADOL HYDROCHLORIDE
     Indication: Neuropathy peripheral
  45. TRAMADOL HYDROCHLORIDE [Suspect]
     Active Substance: TRAMADOL HYDROCHLORIDE
     Indication: Hemiplegic migraine
  46. TRAMADOL HYDROCHLORIDE [Suspect]
     Active Substance: TRAMADOL HYDROCHLORIDE
     Indication: Endometriosis
  47. TRAMADOL HYDROCHLORIDE [Suspect]
     Active Substance: TRAMADOL HYDROCHLORIDE
     Indication: Arthralgia
  48. TRAMADOL HYDROCHLORIDE [Suspect]
     Active Substance: TRAMADOL HYDROCHLORIDE
     Indication: Spinal osteoarthritis
  49. TRAMADOL HYDROCHLORIDE [Suspect]
     Active Substance: TRAMADOL HYDROCHLORIDE
     Indication: Hyperparathyroidism
  50. TRAMADOL HYDROCHLORIDE [Suspect]
     Active Substance: TRAMADOL HYDROCHLORIDE
     Indication: Hernia
  51. COCODAMOL [Suspect]
     Active Substance: ACETAMINOPHEN\CODEINE PHOSPHATE
     Indication: Hypermobility syndrome
     Dosage: UNK
     Route: 048
  52. COCODAMOL [Suspect]
     Active Substance: ACETAMINOPHEN\CODEINE PHOSPHATE
     Indication: Fibromyalgia
  53. COCODAMOL [Suspect]
     Active Substance: ACETAMINOPHEN\CODEINE PHOSPHATE
     Indication: Intervertebral disc degeneration
  54. COCODAMOL [Suspect]
     Active Substance: ACETAMINOPHEN\CODEINE PHOSPHATE
     Indication: Neuropathy peripheral
  55. COCODAMOL [Suspect]
     Active Substance: ACETAMINOPHEN\CODEINE PHOSPHATE
     Indication: Hemiplegic migraine
  56. COCODAMOL [Suspect]
     Active Substance: ACETAMINOPHEN\CODEINE PHOSPHATE
     Indication: Endometriosis
  57. COCODAMOL [Suspect]
     Active Substance: ACETAMINOPHEN\CODEINE PHOSPHATE
     Indication: Arthralgia
  58. COCODAMOL [Suspect]
     Active Substance: ACETAMINOPHEN\CODEINE PHOSPHATE
     Indication: Spinal osteoarthritis
  59. COCODAMOL [Suspect]
     Active Substance: ACETAMINOPHEN\CODEINE PHOSPHATE
     Indication: Hyperparathyroidism
  60. COCODAMOL [Suspect]
     Active Substance: ACETAMINOPHEN\CODEINE PHOSPHATE
     Indication: Hernia
  61. BUTYLSCOPOLAMINE BROMIDE [Suspect]
     Active Substance: BUTYLSCOPOLAMINE BROMIDE
     Indication: Irritable bowel syndrome
     Dosage: UNK
  62. ASPIRIN [Suspect]
     Active Substance: ASPIRIN
     Indication: Hypermobility syndrome
     Dosage: UNK
  63. ASPIRIN [Suspect]
     Active Substance: ASPIRIN
     Indication: Fibromyalgia
  64. ASPIRIN [Suspect]
     Active Substance: ASPIRIN
     Indication: Intervertebral disc degeneration
  65. ASPIRIN [Suspect]
     Active Substance: ASPIRIN
     Indication: Neuropathy peripheral
  66. ASPIRIN [Suspect]
     Active Substance: ASPIRIN
     Indication: Hemiplegic migraine
  67. ASPIRIN [Suspect]
     Active Substance: ASPIRIN
     Indication: Endometriosis
  68. ASPIRIN [Suspect]
     Active Substance: ASPIRIN
     Indication: Arthralgia
  69. ASPIRIN [Suspect]
     Active Substance: ASPIRIN
     Indication: Spinal osteoarthritis
  70. ASPIRIN [Suspect]
     Active Substance: ASPIRIN
     Indication: Hyperparathyroidism
  71. ASPIRIN [Suspect]
     Active Substance: ASPIRIN
     Indication: Hernia
  72. SENNA [Suspect]
     Active Substance: SENNOSIDES
     Indication: Irritable bowel syndrome
     Dosage: UNK
  73. ACETAMINOPHEN [Suspect]
     Active Substance: ACETAMINOPHEN
     Indication: Product used for unknown indication
     Dosage: UNK

REACTIONS (11)
  - Traumatic lung injury [Unknown]
  - Pneumonia [Unknown]
  - Asthma [Unknown]
  - Post-traumatic stress disorder [Unknown]
  - Lung disorder [Unknown]
  - Rash [Unknown]
  - Constipation [Unknown]
  - Diarrhoea [Unknown]
  - Irritable bowel syndrome [Unknown]
  - Irritable bowel syndrome [Unknown]
  - Condition aggravated [Unknown]
